FAERS Safety Report 7727274-3 (Version None)
Quarter: 2011Q3

REPORT INFORMATION
  Report Type: 
  Country: None (occurrence: None)
  Receive Date: 20110902
  Receipt Date: 20110822
  Transmission Date: 20111222
  Serious: Yes (Hospitalization, Other)
  Sender: FDA-Public Use
  Company Number: JP-ELI_LILLY_AND_COMPANY-JP201005001509

PATIENT
  Age: 75 Year
  Sex: Male

DRUGS (3)
  1. ALIMTA [Suspect]
     Indication: PLEURAL MESOTHELIOMA MALIGNANT
     Dosage: 100 MG, UNK
  2. CISPLATIN [Concomitant]
     Dosage: 100 MG, UNK
  3. GEMZAR [Suspect]
     Dosage: UNK

REACTIONS (4)
  - OFF LABEL USE [None]
  - NEPHROTIC SYNDROME [None]
  - METASTASES TO BONE [None]
  - ACUTE PRERENAL FAILURE [None]
